FAERS Safety Report 8374786-8 (Version None)
Quarter: 2012Q2

REPORT INFORMATION
  Report Type: 
  Country: None (occurrence: None)
  Receive Date: 20120521
  Receipt Date: 20120507
  Transmission Date: 20120825
  Serious: No
  Sender: FDA-Public Use
  Company Number: US-ASTRAZENECA-2012SE29324

PATIENT
  Age: 7 Month
  Sex: Female

DRUGS (1)
  1. NEXIUM [Suspect]
     Indication: GASTROOESOPHAGEAL REFLUX DISEASE
     Route: 048

REACTIONS (4)
  - DECREASED APPETITE [None]
  - INSOMNIA [None]
  - DRUG ADMINISTERED TO PATIENT OF INAPPROPRIATE AGE [None]
  - CONSTIPATION [None]
